FAERS Safety Report 23521842 (Version 8)
Quarter: 2024Q3

REPORT INFORMATION
  Report Type: Spontaneous
  Country: US (occurrence: US)
  Receive Date: 20240214
  Receipt Date: 20240730
  Transmission Date: 20241017
  Serious: Yes (Other)
  Sender: PFIZER
  Company Number: US-PFIZER INC-PV202400018732

PATIENT
  Age: 49 Year
  Sex: Male

DRUGS (2)
  1. SOMAVERT [Suspect]
     Active Substance: PEGVISOMANT
     Indication: Acromegaly
     Dosage: INJECT 30 MG UNDER SKIN DAILY IN ABDOMEN, THIGH, UPPER OUTER AREAS BUTTOCKS OR ARM (ROTATE SITES)
     Route: 058
     Dates: start: 20210708
  2. SOMAVERT [Suspect]
     Active Substance: PEGVISOMANT
     Indication: Gigantism

REACTIONS (2)
  - Pneumonia [Unknown]
  - Product dose omission in error [Unknown]
